FAERS Safety Report 19877321 (Version 1)
Quarter: 2021Q3

REPORT INFORMATION
  Report Type: Spontaneous
  Country: GB (occurrence: GB)
  Receive Date: 20210923
  Receipt Date: 20210923
  Transmission Date: 20211014
  Serious: Yes (Disabling)
  Sender: FDA-Public Use
  Company Number: GB-ADVANZ PHARMA-202109006355

PATIENT

DRUGS (5)
  1. PREDNISOLONE. [Suspect]
     Active Substance: PREDNISOLONE
     Indication: ECZEMA
     Dosage: 30 MG, QD
     Route: 048
  2. DOXYCYCLINE. [Concomitant]
     Active Substance: DOXYCYCLINE
  3. FLUCLOXACILLIN [Concomitant]
     Active Substance: FLUCLOXACILLIN
  4. ORAL CONTRACEPTIVE [Concomitant]
     Active Substance: UNSPECIFIED INGREDIENT
     Route: 048
  5. STEROIDS UNSPECIFIED [Suspect]
     Active Substance: UNSPECIFIED INGREDIENT
     Indication: ECZEMA
     Dosage: 1 DOSAGE FORM, QD
     Route: 061
     Dates: start: 20200901, end: 20210105

REACTIONS (13)
  - Skin weeping [Recovering/Resolving]
  - Tremor [Unknown]
  - Dry skin [Unknown]
  - Erythema [Recovering/Resolving]
  - Neuralgia [Recovering/Resolving]
  - Skin atrophy [Recovering/Resolving]
  - Pain in extremity [Unknown]
  - Burning sensation [Recovering/Resolving]
  - Feeling cold [Unknown]
  - Temperature regulation disorder [Recovering/Resolving]
  - Skin exfoliation [Recovering/Resolving]
  - Incorrect product administration duration [Unknown]
  - Pruritus [Recovering/Resolving]
